FAERS Safety Report 24277414 (Version 3)
Quarter: 2025Q1

REPORT INFORMATION
  Report Type: Spontaneous
  Country: US (occurrence: US)
  Receive Date: 20240903
  Receipt Date: 20250212
  Transmission Date: 20250409
  Serious: Yes (Other)
  Sender: AMGEN
  Company Number: US-AMGEN-USASP2024172227

PATIENT

DRUGS (8)
  1. PROLIA [Suspect]
     Active Substance: DENOSUMAB
     Indication: Osteoporosis
     Route: 065
  2. PROLIA [Suspect]
     Active Substance: DENOSUMAB
     Indication: Bone cancer
  3. PROLIA [Suspect]
     Active Substance: DENOSUMAB
     Indication: Duchenne muscular dystrophy
  4. PROLIA [Suspect]
     Active Substance: DENOSUMAB
     Indication: Osteogenesis imperfecta
  5. XGEVA [Suspect]
     Active Substance: DENOSUMAB
     Indication: Osteoporosis
     Route: 065
  6. XGEVA [Suspect]
     Active Substance: DENOSUMAB
     Indication: Bone cancer
  7. XGEVA [Suspect]
     Active Substance: DENOSUMAB
     Indication: Duchenne muscular dystrophy
  8. XGEVA [Suspect]
     Active Substance: DENOSUMAB
     Indication: Osteogenesis imperfecta

REACTIONS (8)
  - Nephropathy toxic [Unknown]
  - Acute phase reaction [Unknown]
  - Hypercalcaemia [Unknown]
  - Bone pain [Unknown]
  - Hypophosphataemia [Unknown]
  - Hypocalcaemia [Unknown]
  - Hypomagnesaemia [Unknown]
  - Tooth extraction [Unknown]
